FAERS Safety Report 23983438 (Version 1)
Quarter: 2024Q2

REPORT INFORMATION
  Report Type: Spontaneous
  Country: US (occurrence: US)
  Receive Date: 20240617
  Receipt Date: 20240617
  Transmission Date: 20240716
  Serious: Yes (Death, Hospitalization, Other)
  Sender: FDA-Public Use
  Company Number: US-DRL-USA-LIT/USA/24/0008377

PATIENT
  Age: 5 Year
  Sex: Male

DRUGS (15)
  1. CYCLOSPORINE [Suspect]
     Active Substance: CYCLOSPORINE
     Indication: Prophylaxis against graft versus host disease
  2. MYCOPHENOLATE MOFETIL [Suspect]
     Active Substance: MYCOPHENOLATE MOFETIL
     Indication: Prophylaxis against graft versus host disease
  3. ABATACEPT [Suspect]
     Active Substance: ABATACEPT
     Indication: Prophylaxis against graft versus host disease
  4. EPINEPHRINE [Concomitant]
     Active Substance: EPINEPHRINE
     Indication: Ejection fraction decreased
  5. MILRINONE [Concomitant]
     Active Substance: MILRINONE
     Indication: Ejection fraction decreased
  6. HUMAN IMMUNOGLOBULIN G [Concomitant]
     Active Substance: HUMAN IMMUNOGLOBULIN G
     Indication: Haemophagocytic lymphohistiocytosis
  7. TOCILIZUMAB [Concomitant]
     Active Substance: TOCILIZUMAB
     Indication: Haemophagocytic lymphohistiocytosis
  8. DEXAMETHASONE [Concomitant]
     Active Substance: DEXAMETHASONE
     Indication: Haemophagocytic lymphohistiocytosis
  9. EMAPALUMAB [Concomitant]
     Active Substance: EMAPALUMAB
     Indication: Haemophagocytic lymphohistiocytosis
  10. CYCLOPHOSPHAMIDE [Concomitant]
     Active Substance: CYCLOPHOSPHAMIDE
     Indication: Immunosuppressant drug therapy
  11. ALEMTUZUMAB [Concomitant]
     Active Substance: ALEMTUZUMAB
     Indication: Immunosuppressant drug therapy
  12. FLUDARABINE [Concomitant]
     Active Substance: FLUDARABINE PHOSPHATE
     Indication: Immunosuppressant drug therapy
  13. VINCRISTINE [Concomitant]
     Active Substance: VINCRISTINE
     Indication: Acute leukaemia
  14. PEGASPARGASE [Concomitant]
     Active Substance: PEGASPARGASE
     Indication: Acute leukaemia
  15. DAUNORUBICIN [Concomitant]
     Active Substance: DAUNORUBICIN
     Indication: Acute leukaemia

REACTIONS (14)
  - Disseminated intravascular coagulation [Fatal]
  - Septic shock [Fatal]
  - Thrombotic microangiopathy [Unknown]
  - Pericardial effusion [Unknown]
  - Respiratory distress [Unknown]
  - Acinetobacter infection [Unknown]
  - Pneumonia [Unknown]
  - Pneumomediastinum [Unknown]
  - Pneumothorax [Unknown]
  - Cardiac dysfunction [Unknown]
  - Multiple organ dysfunction syndrome [Unknown]
  - Product use in unapproved indication [Unknown]
  - Weight decreased [Unknown]
  - Abdominal pain [Unknown]
